FAERS Safety Report 23124425 (Version 1)
Quarter: 2023Q4

REPORT INFORMATION
  Report Type: Report from Study
  Country: US (occurrence: US)
  Receive Date: 20231030
  Receipt Date: 20231030
  Transmission Date: 20240110
  Serious: Yes (Life-Threatening, Hospitalization, Other)
  Sender: FDA-Public Use
  Company Number: US-Bristol-Myers Squibb Company-BMS-2016-096257

PATIENT
  Age: 24 Year
  Sex: Male
  Weight: 78.4 kg

DRUGS (5)
  1. IPILIMUMAB [Suspect]
     Active Substance: IPILIMUMAB
     Indication: Product used for unknown indication
     Dosage: 1 MG/KG, Q3WK
     Route: 042
     Dates: start: 20161102
  2. ALDESLEUKIN [Suspect]
     Active Substance: ALDESLEUKIN
     Indication: Product used for unknown indication
     Dosage: 1000000 INTERNATIONAL UNIT PER MILLIGRAM OF CREATININE 500000 INTERNATIONAL UNIT PER MILLIGRAM OF CR
     Route: 058
     Dates: start: 20161103
  3. INVESTIGATIONAL PRODUCT [Suspect]
     Active Substance: INVESTIGATIONAL PRODUCT
     Indication: Malignant melanoma
  4. INVESTIGATIONAL PRODUCT [Suspect]
     Active Substance: INVESTIGATIONAL PRODUCT
     Indication: Sarcoma
  5. NEUPOGEN [Concomitant]
     Active Substance: FILGRASTIM
     Indication: Product used for unknown indication
     Dosage: 480 ?G, QD
     Route: 058

REACTIONS (4)
  - Hepatotoxicity [Unknown]
  - Mucosal inflammation [Unknown]
  - Pyrexia [Unknown]
  - Cytokine release syndrome [Unknown]

NARRATIVE: CASE EVENT DATE: 20161109
